FAERS Safety Report 10772912 (Version 1)
Quarter: 2015Q1

REPORT INFORMATION
  Report Type: Other
  Country: US (occurrence: US)
  Receive Date: 20150207
  Receipt Date: 20150207
  Transmission Date: 20150721
  Serious: No
  Sender: FDA-Public Use
  Company Number: US-ACORDA-ACO_106276_2014

PATIENT
  Age: 76 Year
  Sex: Female
  Weight: 59.86 kg

DRUGS (6)
  1. VITAMIN D [Concomitant]
     Active Substance: CHOLECALCIFEROL
     Indication: VITAMIN D DEFICIENCY
     Dosage: 50000 IU, WEEKLY
     Route: 065
     Dates: start: 2008
  2. AMANTADINE HCL [Concomitant]
     Active Substance: AMANTADINE HYDROCHLORIDE
     Indication: FATIGUE
     Dosage: 100 MG, QD
     Route: 048
  3. CELEXA [Concomitant]
     Active Substance: CITALOPRAM HYDROBROMIDE
     Indication: DEPRESSION
     Dosage: 20 MG, QD
     Route: 048
  4. ASPIRIN. [Concomitant]
     Active Substance: ASPIRIN
     Indication: ATRIAL FIBRILLATION
     Dosage: 81 MG, QD
     Route: 048
     Dates: start: 2014
  5. AMPYRA [Suspect]
     Active Substance: DALFAMPRIDINE
     Indication: GAIT DISTURBANCE
     Dosage: 10 MG, Q 12 HRS
     Route: 048
     Dates: start: 20140918, end: 20140919
  6. ESTRADIOL. [Concomitant]
     Active Substance: ESTRADIOL
     Indication: HORMONE REPLACEMENT THERAPY
     Dosage: 0.5 MG, QD
     Route: 048

REACTIONS (9)
  - Rash pruritic [Recovering/Resolving]
  - Hypersomnia [Recovered/Resolved]
  - Disorientation [Recovered/Resolved]
  - Malaise [Recovered/Resolved]
  - Gait disturbance [Recovered/Resolved]
  - Decreased appetite [Recovered/Resolved]
  - Abdominal discomfort [Recovered/Resolved]
  - Dysstasia [Recovered/Resolved]
  - Drug ineffective [Unknown]

NARRATIVE: CASE EVENT DATE: 20140919
